FAERS Safety Report 5813407-2 (Version None)
Quarter: 2008Q3

REPORT INFORMATION
  Report Type: 
  Country: None (occurrence: None)
  Receive Date: 20080716
  Receipt Date: 20080716
  Transmission Date: 20090109
  Serious: Yes (Hospitalization)
  Sender: FDA-Public Use
  Company Number: None

PATIENT
  Age: 61 Year
  Sex: Female

DRUGS (1)
  1. DIGOXIN 125MCG QOD [Suspect]
     Dosage: SEE ABOVE

REACTIONS (6)
  - CARDIOACTIVE DRUG LEVEL INCREASED [None]
  - DYSPNOEA [None]
  - NAUSEA [None]
  - PAIN [None]
  - TREMOR [None]
  - VOMITING [None]
